FAERS Safety Report 7803963-7 (Version None)
Quarter: 2011Q4

REPORT INFORMATION
  Report Type: 
  Country: None (occurrence: None)
  Receive Date: 20111010
  Receipt Date: 20110927
  Transmission Date: 20120403
  Serious: Yes (Hospitalization, Other)
  Sender: FDA-Public Use
  Company Number: US-JNJFOC-20111001145

PATIENT
  Sex: Male
  Weight: 48.08 kg

DRUGS (14)
  1. SPIRONOLACTONE [Concomitant]
     Indication: FLUID RETENTION
     Route: 048
     Dates: start: 20110730
  2. SPIRONOLACTONE [Concomitant]
     Route: 048
     Dates: start: 19910101
  3. ZYTIGA [Suspect]
     Indication: PROSTATE CANCER METASTATIC
     Route: 048
     Dates: start: 20110701, end: 20110701
  4. LASIX [Concomitant]
     Route: 048
     Dates: start: 19910101
  5. TRAZODONE HYDROCHLORIDE [Concomitant]
     Indication: NERVOUSNESS
     Route: 065
  6. PREDNISONE [Suspect]
     Route: 048
     Dates: start: 20110701
  7. TOPROL-XL [Concomitant]
     Route: 048
     Dates: start: 19910101
  8. LASIX [Concomitant]
     Indication: OEDEMA
     Route: 048
     Dates: start: 20110723
  9. TOPROL-XL [Concomitant]
     Indication: BLOOD PRESSURE
     Route: 048
  10. PREDNISONE [Suspect]
     Indication: PROSTATE CANCER METASTATIC
     Route: 048
     Dates: start: 20110701
  11. LASIX [Concomitant]
     Indication: FLUID RETENTION
     Route: 048
     Dates: start: 20110723
  12. LASIX [Concomitant]
     Route: 048
     Dates: start: 19910101
  13. TRAZODONE HYDROCHLORIDE [Concomitant]
     Indication: FEELING JITTERY
     Route: 065
  14. ZYTIGA [Suspect]
     Route: 048
     Dates: start: 20110801

REACTIONS (15)
  - RESTLESS LEGS SYNDROME [None]
  - DRUG INEFFECTIVE [None]
  - PROSTATIC SPECIFIC ANTIGEN INCREASED [None]
  - WEIGHT INCREASED [None]
  - NERVOUSNESS [None]
  - DEPRESSED MOOD [None]
  - WEIGHT DECREASED [None]
  - MUSCLE TWITCHING [None]
  - HYPERSOMNIA [None]
  - FATIGUE [None]
  - ASTHENIA [None]
  - FLUID RETENTION [None]
  - PRURITUS [None]
  - FEELING JITTERY [None]
  - SOMNOLENCE [None]
